FAERS Safety Report 17828742 (Version 2)
Quarter: 2021Q1

REPORT INFORMATION
  Report Type: Other
  Country: FR (occurrence: FR)
  Receive Date: 20200527
  Receipt Date: 20210107
  Transmission Date: 20210419
  Serious: Yes (Death, Other)
  Sender: FDA-Public Use
  Company Number: FR-ROCHE-2608459

PATIENT
  Age: 68 Year
  Sex: Male

DRUGS (1)
  1. ALTEPLASE. [Suspect]
     Active Substance: ALTEPLASE
     Indication: CEREBROVASCULAR ACCIDENT
     Route: 042

REACTIONS (8)
  - Multiple organ dysfunction syndrome [Fatal]
  - Hypoxia [Fatal]
  - Respiratory distress [Unknown]
  - Blood pressure decreased [Unknown]
  - Tongue oedema [Unknown]
  - Lip oedema [Unknown]
  - Bradycardia [Unknown]
  - Angioedema [Unknown]
